FAERS Safety Report 4785607-4 (Version None)
Quarter: 2005Q4

REPORT INFORMATION
  Report Type: 
  Country: None (occurrence: None)
  Receive Date: 20051003
  Receipt Date: 20050920
  Transmission Date: 20060501
  Serious: Yes (Life-Threatening)
  Sender: FDA-Public Use
  Company Number: AU-BOEHRINGER INGELHEIM PHARMACEUTICALS, INC.-2005-BP-16633AU

PATIENT
  Sex: Female
  Weight: 100 kg

DRUGS (2)
  1. MOBIC [Suspect]
     Route: 048
     Dates: start: 20040401
  2. PREDNISOLONE [Suspect]
     Route: 048

REACTIONS (2)
  - ABDOMINAL PAIN [None]
  - DUODENAL ULCER PERFORATION [None]
